FAERS Safety Report 8011897-0 (Version None)
Quarter: 2011Q4

REPORT INFORMATION
  Report Type: 
  Country: None (occurrence: None)
  Receive Date: 20111228
  Receipt Date: 20111219
  Transmission Date: 20120403
  Serious: Yes (Death)
  Sender: FDA-Public Use
  Company Number: US-PFIZER INC-2011309709

PATIENT
  Age: 51 Year
  Sex: Female

DRUGS (9)
  1. ONDANSETRON [Suspect]
     Route: 048
  2. PROPRANOLOL HCL [Suspect]
     Route: 048
  3. CYCLOBENZAPRINE [Suspect]
     Route: 048
  4. LORAZEPAM [Suspect]
     Route: 048
  5. PAROXETINE [Suspect]
     Route: 048
  6. SIMVASTATIN [Suspect]
     Route: 048
  7. HYDROCHLOROTHIAZIDE [Suspect]
     Route: 048
  8. ETHANOL [Suspect]
     Route: 048
  9. BUPROPION HYDROCHLORIDE [Suspect]
     Route: 048

REACTIONS (2)
  - COMPLETED SUICIDE [None]
  - INTENTIONAL DRUG MISUSE [None]
